FAERS Safety Report 16144044 (Version 2)
Quarter: 2019Q3

REPORT INFORMATION
  Report Type: Report from Study
  Country: US (occurrence: US)
  Receive Date: 20190401
  Receipt Date: 20190911
  Transmission Date: 20191004
  Serious: Yes (Other)
  Sender: FDA-Public Use
  Company Number: US-ACTELION-A-NJ2019-187707

PATIENT
  Age: 44 Year
  Sex: Female

DRUGS (8)
  1. METOLAZONE. [Concomitant]
     Active Substance: METOLAZONE
  2. OPSUMIT [Suspect]
     Active Substance: MACITENTAN
     Indication: PULMONARY ARTERIAL HYPERTENSION
     Dosage: 10 MG, QD
     Route: 048
     Dates: start: 20180209
  3. METOPROLOL. [Concomitant]
     Active Substance: METOPROLOL
  4. TRAMADOL. [Concomitant]
     Active Substance: TRAMADOL
  5. FUROSEMIDE. [Concomitant]
     Active Substance: FUROSEMIDE
  6. ATORVASTATIN [Concomitant]
     Active Substance: ATORVASTATIN
  7. FERROUS SULFATE. [Concomitant]
     Active Substance: FERROUS SULFATE
  8. LOSARTAN AND HYDROCHLOROTHIAZIDE [Concomitant]
     Active Substance: HYDROCHLOROTHIAZIDE\LOSARTAN POTASSIUM

REACTIONS (6)
  - Surgery [Unknown]
  - Oropharyngeal pain [Not Recovered/Not Resolved]
  - Product dose omission [Not Recovered/Not Resolved]
  - Peripheral swelling [Unknown]
  - Wheezing [Not Recovered/Not Resolved]
  - Productive cough [Not Recovered/Not Resolved]

NARRATIVE: CASE EVENT DATE: 20190326
